FAERS Safety Report 10250267 (Version 1)
Quarter: 2014Q2

REPORT INFORMATION
  Report Type: Report from Study
  Country: US (occurrence: JP)
  Receive Date: 20140620
  Receipt Date: 20140620
  Transmission Date: 20141212
  Serious: Yes (Hospitalization)
  Sender: FDA-Public Use
  Company Number: US-SA-2014SA080595

PATIENT
  Age: 42 Year
  Sex: Male
  Weight: 55.9 kg

DRUGS (8)
  1. LASIX [Suspect]
     Indication: CARDIAC FAILURE
     Route: 048
     Dates: start: 20140313
  2. PLACEBO [Suspect]
     Indication: CARDIAC FAILURE ACUTE
     Route: 065
     Dates: start: 20140318, end: 20140324
  3. PLACEBO [Suspect]
     Indication: CARDIAC FAILURE ACUTE
     Route: 065
     Dates: start: 20140325, end: 20140331
  4. PLACEBO [Suspect]
     Indication: CARDIAC FAILURE ACUTE
     Route: 065
     Dates: start: 20140401
  5. BLOPRESS [Concomitant]
     Indication: CARDIAC FAILURE
     Dates: start: 20140320
  6. BLOPRESS [Concomitant]
     Indication: HYPERTENSION
     Dates: start: 20140320
  7. ARTIST [Concomitant]
     Indication: CARDIAC FAILURE
     Dates: start: 20140324
  8. ARTIST [Concomitant]
     Indication: HYPERTENSION
     Dates: start: 20140324

REACTIONS (1)
  - Thrombosis [Recovered/Resolved]
